FAERS Safety Report 4929324-6 (Version None)
Quarter: 2006Q1

REPORT INFORMATION
  Report Type: 
  Country: None (occurrence: None)
  Receive Date: 20060130
  Receipt Date: 20051021
  Transmission Date: 20060701
  Serious: Yes (Other)
  Sender: FDA-Public Use
  Company Number: EM2005-0550

PATIENT
  Age: 17 Year
  Sex: Male

DRUGS (1)
  1. TOBI [Suspect]
     Indication: CYSTIC FIBROSIS
     Dosage: BID, INHALATION
     Route: 055

REACTIONS (2)
  - COUGH [None]
  - DYSPHONIA [None]
